FAERS Safety Report 9825433 (Version 1)
Quarter: 2013Q4

REPORT INFORMATION
  Report Type: Spontaneous
  Country: US (occurrence: None)
  Receive Date: 20131101
  Receipt Date: 20131101
  Transmission Date: 20140711
  Serious: Yes (Other)
  Sender: FDA-Public Use
  Company Number: ID NR. 2427_SP

PATIENT
  Age: 34 Year
  Sex: Male
  Weight: 125.1 kg

DRUGS (3)
  1. LEVOFLOXACIN/DEXTROSE [Suspect]
     Indication: LOCAL SWELLING
     Dosage: 500 MG ONCE, IV
     Route: 042
     Dates: start: 20130616, end: 20130616
  2. LEVOFLOXACIN/DEXTROSE [Suspect]
     Indication: PAIN IN EXTREMITY
     Dosage: 500 MG ONCE, IV
     Route: 042
     Dates: start: 20130616, end: 20130616
  3. MORPHINE 5 MG [Concomitant]

REACTIONS (2)
  - Chest pain [None]
  - Dyspnoea [None]
